FAERS Safety Report 4614295-2 (Version None)
Quarter: 2005Q2

REPORT INFORMATION
  Report Type: 
  Country: None (occurrence: None)
  Receive Date: 20050225
  Receipt Date: 20050124
  Transmission Date: 20051028
  Serious: No
  Sender: FDA-Public Use
  Company Number: SUS1-2005-00048

PATIENT
  Sex: Male

DRUGS (1)
  1. FOSRENOL [Suspect]
     Dosage: 2,500 MG TABLETS, UNK

REACTIONS (2)
  - HYPERSENSITIVITY [None]
  - URTICARIA [None]
